FAERS Safety Report 24767693 (Version 4)
Quarter: 2025Q1

REPORT INFORMATION
  Report Type: Spontaneous
  Country: US (occurrence: US)
  Receive Date: 20241223
  Receipt Date: 20250127
  Transmission Date: 20250409
  Serious: No
  Sender: PFIZER
  Company Number: US-PFIZER INC-202400328199

PATIENT
  Age: 62 Year
  Sex: Female
  Weight: 127.91 kg

DRUGS (5)
  1. SOMAVERT [Suspect]
     Active Substance: PEGVISOMANT
     Indication: Acromegaly
     Dosage: 15 MG, DAILY
     Route: 058
     Dates: start: 20240918
  2. LANREOTIDE [Suspect]
     Active Substance: LANREOTIDE
     Dosage: 120 MG, MONTHLY
  3. ATORVASTATIN [Concomitant]
     Active Substance: ATORVASTATIN
  4. MONTELUKAST [Concomitant]
     Active Substance: MONTELUKAST
  5. XARELTO [Concomitant]
     Active Substance: RIVAROXABAN

REACTIONS (1)
  - Drug ineffective [Not Recovered/Not Resolved]
